FAERS Safety Report 7757168-9 (Version None)
Quarter: 2011Q3

REPORT INFORMATION
  Report Type: 
  Country: None (occurrence: None)
  Receive Date: 20110916
  Receipt Date: 20110914
  Transmission Date: 20111222
  Serious: No
  Sender: FDA-Public Use
  Company Number: US-TEVA-300767USA

PATIENT
  Sex: Female
  Weight: 82.628 kg

DRUGS (6)
  1. HYDROCHLOROTHIAZIDE [Concomitant]
  2. METOPROLOL TARTRATE [Concomitant]
  3. CALCIUM CARBONATE [Concomitant]
  4. LISINOPRIL [Concomitant]
  5. PROAIR HFA [Suspect]
     Dosage: 90 MICROGRAM;
     Route: 055
     Dates: start: 20110901
  6. CELECOXIB [Concomitant]

REACTIONS (1)
  - MOUTH ULCERATION [None]
